FAERS Safety Report 23993018 (Version 3)
Quarter: 2024Q3

REPORT INFORMATION
  Report Type: Report from Study
  Country: CA (occurrence: CA)
  Receive Date: 20240620
  Receipt Date: 20240711
  Transmission Date: 20241016
  Serious: Yes (Other)
  Sender: TEVA
  Company Number: CA-TEVA-VS-3206915

PATIENT
  Age: 84 Year
  Sex: Female

DRUGS (5)
  1. TERIPARATIDE [Suspect]
     Active Substance: TERIPARATIDE
     Indication: Osteoporosis
     Dosage: 20 MCG
     Route: 058
     Dates: start: 20240424, end: 20240611
  2. SYNTHROID [Concomitant]
     Active Substance: LEVOTHYROXINE SODIUM
     Indication: Hypothyroidism
     Dosage: 0.075 MG ONCE DAILY
  3. BREZTRI [Concomitant]
     Active Substance: BUDESONIDE\FORMOTEROL\GLYCOPYRROLATE
     Indication: Asthma
     Dosage: INHALE 2 PUFFS TWICE DAILY
     Route: 055
  4. PROLIA [Concomitant]
     Active Substance: DENOSUMAB
     Indication: Osteoporosis
  5. DOXYCYCLINE HYCLATE [Concomitant]
     Active Substance: DOXYCYCLINE HYCLATE

REACTIONS (10)
  - Pathological fracture [Unknown]
  - Malaise [Unknown]
  - Muscle spasms [Not Recovered/Not Resolved]
  - Sleep disorder [Recovering/Resolving]
  - Peripheral swelling [Recovering/Resolving]
  - COVID-19 [Unknown]
  - Pain in extremity [Not Recovered/Not Resolved]
  - Joint swelling [Recovering/Resolving]
  - Sleep deficit [Not Recovered/Not Resolved]
  - Chest discomfort [Not Recovered/Not Resolved]

NARRATIVE: CASE EVENT DATE: 20240101
